FAERS Safety Report 5051003-8 (Version None)
Quarter: 2006Q3

REPORT INFORMATION
  Report Type: 
  Country: None (occurrence: None)
  Receive Date: 20060714
  Receipt Date: 20060705
  Transmission Date: 20061208
  Serious: Yes (Life-Threatening)
  Sender: FDA-Public Use
  Company Number: GB-BRACCO-BRO-010313

PATIENT
  Age: 45 Year
  Sex: Male

DRUGS (4)
  1. NIOPAM [Suspect]
     Indication: PERCUTANEOUS CORONARY INTERVENTION
     Route: 050
     Dates: start: 20060522, end: 20060522
  2. IOHEXOL [Suspect]
     Indication: PERCUTANEOUS CORONARY INTERVENTION
     Route: 050
     Dates: start: 20060522, end: 20060522
  3. BIVALIRUDIN [Suspect]
     Indication: PERCUTANEOUS CORONARY INTERVENTION
     Route: 042
     Dates: start: 20060522, end: 20060522
  4. BIVALIRUDIN [Suspect]
     Route: 042
     Dates: start: 20060522, end: 20060522

REACTIONS (2)
  - ANAPHYLACTIC REACTION [None]
  - CARDIAC ARREST [None]
